FAERS Safety Report 9064868 (Version 1)
Quarter: 2013Q1

REPORT INFORMATION
  Report Type: Spontaneous
  Country: JP (occurrence: JP)
  Receive Date: 20130206
  Receipt Date: 20130206
  Transmission Date: 20140127
  Serious: Yes (Other)
  Sender: FDA-Public Use
  Company Number: JP-ROCHE-1187673

PATIENT
  Age: 89 Year
  Sex: Male
  Weight: 46 kg

DRUGS (5)
  1. TAMIFLU [Suspect]
     Indication: INFLUENZA
     Route: 048
  2. CALONAL [Concomitant]
     Dosage: DOSAGE IS UNCERTAIN.
     Route: 065
  3. FLOMOX [Concomitant]
     Dosage: DOSAGE IS UNCERTAIN.
     Route: 065
  4. MUCODYNE [Concomitant]
     Dosage: DOSAGE IS UNCERTAIN.
     Route: 065
  5. HUSTAZOL [Concomitant]
     Dosage: DOSAGE IS UNCERTAIN.
     Route: 065

REACTIONS (2)
  - Encephalitis [Unknown]
  - Delirium [Recovered/Resolved]
